FAERS Safety Report 18617848 (Version 1)
Quarter: 2020Q4

REPORT INFORMATION
  Report Type: Spontaneous
  Country: GB (occurrence: GB)
  Receive Date: 20201215
  Receipt Date: 20201215
  Transmission Date: 20210114
  Serious: Yes (Hospitalization)
  Sender: FDA-Public Use
  Company Number: GB-ACCORD-210871

PATIENT
  Age: 88 Year
  Sex: Female

DRUGS (11)
  1. SIMVASTATIN. [Concomitant]
     Active Substance: SIMVASTATIN
     Dosage: AT NIGHT, 28 TABLET PACK
  2. RISPERIDONE. [Concomitant]
     Active Substance: RISPERIDONE
     Dosage: HALF TABLET IN MORNING, HALF TABLET AT NIGHT, DISCONTINUED
  3. IRON [Concomitant]
     Active Substance: IRON
     Dosage: 84 TABLET PACK
  4. ACETYLSALICYLIC ACID [Suspect]
     Active Substance: ASPIRIN
     Indication: PRODUCT USED FOR UNKNOWN INDICATION
     Dosage: DRUG HELD
  5. METFORMIN [Concomitant]
     Active Substance: METFORMIN HYDROCHLORIDE
     Dosage: DISCONTINUED, 84 TABLET PACK
  6. BETAHISTINE [Concomitant]
     Active Substance: BETAHISTINE
     Dosage: DISCONTINUED
  7. SERTRALINE [Suspect]
     Active Substance: SERTRALINE HYDROCHLORIDE
     Indication: PRODUCT USED FOR UNKNOWN INDICATION
     Dosage: DISCONTINUED
  8. BENDROFLUMETHIAZIDE [Concomitant]
     Active Substance: BENDROFLUMETHIAZIDE
     Dosage: EACH MORNING, DISCONTINUED, 28 TABLET PACK
  9. DONEPEZIL/DONEPEZIL HYDROCHLORIDE [Concomitant]
     Active Substance: DONEPEZIL HYDROCHLORIDE
     Dosage: AT NIGHT
  10. OMEPRAZOLE. [Concomitant]
     Active Substance: OMEPRAZOLE
  11. FOLIC ACID. [Concomitant]
     Active Substance: FOLIC ACID

REACTIONS (3)
  - Fall [Unknown]
  - Upper gastrointestinal haemorrhage [Unknown]
  - Back pain [Unknown]
